FAERS Safety Report 6583107-2 (Version None)
Quarter: 2010Q1

REPORT INFORMATION
  Report Type: 
  Country: None (occurrence: None)
  Receive Date: 20100216
  Receipt Date: 20100209
  Transmission Date: 20100710
  Serious: Yes (Hospitalization, Other)
  Sender: FDA-Public Use
  Company Number: US-MERCK-0802USA01620

PATIENT
  Age: 54 Year
  Sex: Female
  Weight: 53 kg

DRUGS (2)
  1. FOSAMAX [Suspect]
     Indication: OSTEOPOROSIS PROPHYLAXIS
     Route: 048
     Dates: start: 20020722, end: 20061010
  2. FOSAMAX [Suspect]
     Route: 048

REACTIONS (26)
  - ABSCESS [None]
  - ACCIDENT AT WORK [None]
  - ANXIETY [None]
  - APPENDICEAL MUCOCOELE [None]
  - ASTHMA [None]
  - DENTAL CARIES [None]
  - DRUG ADMINISTRATION ERROR [None]
  - EAR DISORDER [None]
  - EUSTACHIAN TUBE DISORDER [None]
  - EUSTACHIAN TUBE OBSTRUCTION [None]
  - EXOSTOSIS [None]
  - FISTULA [None]
  - GASTROINTESTINAL DISORDER [None]
  - GINGIVAL BLEEDING [None]
  - HAEMATURIA [None]
  - IMPAIRED HEALING [None]
  - INTESTINAL MASS [None]
  - MASS [None]
  - NASAL SEPTUM DEVIATION [None]
  - NEOPLASM OF APPENDIX [None]
  - ORAL TORUS [None]
  - OSTEONECROSIS [None]
  - PSEUDOMYXOMA PERITONEI [None]
  - SINUS DISORDER [None]
  - STOMATITIS [None]
  - THERMAL BURN [None]
